FAERS Safety Report 17386329 (Version 1)
Quarter: 2020Q1

REPORT INFORMATION
  Report Type: Report from Study
  Country: FR (occurrence: FR)
  Receive Date: 20200206
  Receipt Date: 20200206
  Transmission Date: 20200409
  Serious: Yes (Hospitalization)
  Sender: FDA-Public Use
  Company Number: FR-AMGEN-FRANI2020014917

PATIENT
  Age: 62 Year
  Sex: Male
  Weight: 55 kg

DRUGS (6)
  1. IRINOTECAN [Suspect]
     Active Substance: IRINOTECAN
     Indication: COLORECTAL CANCER
     Dosage: 250 MILLIGRAM
     Route: 042
     Dates: start: 20191224
  2. OXALIPLATIN. [Suspect]
     Active Substance: OXALIPLATIN
     Indication: COLORECTAL CANCER
     Dosage: 145 MILLIGRAM
     Route: 042
     Dates: start: 20191224
  3. 5 FU [Suspect]
     Active Substance: FLUOROURACIL
     Indication: COLORECTAL CANCER
     Dosage: 4000 MILLIGRAM
     Route: 042
     Dates: start: 20191224
  4. 5 FU [Suspect]
     Active Substance: FLUOROURACIL
     Dosage: 670 MILLIGRAM
     Route: 040
     Dates: start: 20191224
  5. ELVORINE [Suspect]
     Active Substance: LEUCOVORIN CALCIUM
     Indication: COLORECTAL CANCER
     Dosage: 336 MILLIGRAM
     Route: 042
     Dates: start: 20191224
  6. PANITUMUMAB [Suspect]
     Active Substance: PANITUMUMAB
     Indication: COLORECTAL CANCER
     Dosage: 350 MILLIGRAM
     Route: 042
     Dates: start: 20191224

REACTIONS (2)
  - Enterocutaneous fistula [Not Recovered/Not Resolved]
  - Subcutaneous abscess [Not Recovered/Not Resolved]

NARRATIVE: CASE EVENT DATE: 20200115
